FAERS Safety Report 5714506-6 (Version None)
Quarter: 2008Q2

REPORT INFORMATION
  Report Type: 
  Country: None (occurrence: None)
  Receive Date: 20080423
  Receipt Date: 20080415
  Transmission Date: 20081010
  Serious: Yes (Other)
  Sender: FDA-Public Use
  Company Number: DE-JNJFOC-20080402794

PATIENT
  Age: 17 Year
  Sex: Female

DRUGS (2)
  1. CONCERTA [Suspect]
     Indication: ATTENTION DEFICIT/HYPERACTIVITY DISORDER
     Route: 048
  2. ST. JOHN'S WORT [Concomitant]
     Route: 065

REACTIONS (2)
  - PSYCHOTIC DISORDER [None]
  - SCHIZOPHRENIA [None]
